FAERS Safety Report 22035295 (Version 1)
Quarter: 2023Q1

REPORT INFORMATION
  Report Type: Spontaneous
  Country: US (occurrence: None)
  Receive Date: 20230223
  Receipt Date: 20230223
  Transmission Date: 20230417
  Serious: Yes (Other)
  Sender: FDA-Public Use
  Company Number: None

PATIENT
  Age: 49 Year
  Sex: Female
  Weight: 67.95 kg

DRUGS (12)
  1. ATORVASTATIN CALCIUM [Suspect]
     Active Substance: ATORVASTATIN CALCIUM
     Indication: Hypertension
     Dosage: FREQUENCY : DAILY;?
     Route: 048
  2. DICLOFENCA SODIUM DELAYED RELEASE 75 MG TAB [Concomitant]
     Dates: start: 20220803, end: 20221227
  3. FOLIC ACID 1 MG TAB [Concomitant]
     Dates: start: 20220101
  4. FAMOTIDINE 20 MG TAB [Concomitant]
     Dates: start: 20220101
  5. TIZANIDINE HYDROCHLORIDE [Concomitant]
     Active Substance: TIZANIDINE HYDROCHLORIDE
     Dates: start: 20220101
  6. OMEPRAZOLE [Concomitant]
     Active Substance: OMEPRAZOLE
     Dates: start: 20220101
  7. CLONAZEPAM 0.5 MG TAB [Concomitant]
     Dates: start: 20220101
  8. TRAZODONE HCL 100 MG TAB [Concomitant]
     Dates: start: 20220101
  9. DULOXETINE HCL 30 MG CPE [Concomitant]
     Dates: start: 20220101
  10. STELARA 90 MG/ML TAB [Concomitant]
     Dates: start: 20220101
  11. GABAPENTIN 400 MG CAP [Concomitant]
     Dates: start: 20230101
  12. MELOXICAM 15 MG TAB [Concomitant]
     Dates: start: 20230101

REACTIONS (4)
  - Malaise [None]
  - Pain [None]
  - Mobility decreased [None]
  - Impaired quality of life [None]

NARRATIVE: CASE EVENT DATE: 20230223
